FAERS Safety Report 22309685 (Version 1)
Quarter: 2023Q2

REPORT INFORMATION
  Report Type: Report from Study
  Country: US (occurrence: US)
  Receive Date: 20230511
  Receipt Date: 20230511
  Transmission Date: 20230722
  Serious: Yes (Disabling)
  Sender: FDA-Public Use
  Company Number: US-PTC THERAPEUTICS INC.-US-2023PTC000621

PATIENT
  Sex: Male

DRUGS (1)
  1. EMFLAZA [Suspect]
     Active Substance: DEFLAZACORT
     Indication: Product used for unknown indication

REACTIONS (4)
  - Walking disability [Unknown]
  - Torus fracture [Unknown]
  - Bone loss [Unknown]
  - Fall [Unknown]

NARRATIVE: CASE EVENT DATE: 20230106
